FAERS Safety Report 22188068 (Version 1)
Quarter: 2023Q2

REPORT INFORMATION
  Report Type: Spontaneous
  Country: FR (occurrence: FR)
  Receive Date: 20230408
  Receipt Date: 20230408
  Transmission Date: 20230721
  Serious: Yes (Hospitalization)
  Sender: FDA-Public Use
  Company Number: None

PATIENT
  Age: 75 Year
  Sex: Male
  Weight: 78 kg

DRUGS (9)
  1. ROSUVASTATIN CALCIUM [Suspect]
     Active Substance: ROSUVASTATIN CALCIUM
     Indication: Hypercholesterolaemia
     Route: 065
     Dates: start: 20221215, end: 20230131
  2. INNOVAIR [Concomitant]
     Active Substance: BECLOMETHASONE DIPROPIONATE\FORMOTEROL
     Indication: Product used for unknown indication
     Dosage: INNOVAIR 200/6 MICROGRAMS/DOSE, SOLUTION FOR INHALATION IN A PRESSURIZED BOTTLE
     Route: 065
  3. ANORO ELLIPTA [Concomitant]
     Active Substance: UMECLIDINIUM BROMIDE\VILANTEROL TRIFENATATE
     Indication: Product used for unknown indication
     Dosage: ANORO ELLIPTA 55 MICROGRAMS/22 MICROGRAMS INHALATION POWDER IN SINGLE-DOSE CONTAINER
     Route: 065
  4. TERAZOSINE HYDROCHLORIDE DIHYDRATE [Concomitant]
     Indication: Product used for unknown indication
  5. FLUTICASONE FUROATE [Concomitant]
     Active Substance: FLUTICASONE FUROATE
     Indication: Product used for unknown indication
     Dosage: STRENGTH : 27.5 MICROGRAMS/SPRAY
  6. DUTASTERIDE [Concomitant]
     Active Substance: DUTASTERIDE
     Indication: Product used for unknown indication
  7. ALBUTEROL [Concomitant]
     Active Substance: ALBUTEROL
     Indication: Product used for unknown indication
     Dosage: 100 MICROGRAMS PER DOSE, SUSPENSION FOR INHALATION IN A PRESSURIZED BOTTLE
  8. TEMESTA [Concomitant]
     Indication: Product used for unknown indication
  9. ELIQUIS [Concomitant]
     Active Substance: APIXABAN
     Indication: Product used for unknown indication

REACTIONS (1)
  - Autoimmune haemolytic anaemia [Recovered/Resolved]

NARRATIVE: CASE EVENT DATE: 20230131
